FAERS Safety Report 9944661 (Version 1)
Quarter: 2014Q1

REPORT INFORMATION
  Report Type: Report from Study
  Country: US (occurrence: US)
  Receive Date: 20140303
  Receipt Date: 20140303
  Transmission Date: 20141002
  Serious: No
  Sender: FDA-Public Use
  Company Number: US-ABBVIE-13P-163-1050336-00

PATIENT
  Age: 40 Year
  Sex: Male

DRUGS (9)
  1. HUMIRA [Suspect]
     Indication: CROHN^S DISEASE
     Dates: start: 201211
  2. METHOTREXATE [Concomitant]
     Indication: CROHN^S DISEASE
     Route: 050
  3. FOLIC ACID [Concomitant]
     Indication: PRODUCT USED FOR UNKNOWN INDICATION
     Dosage: 1 MG DAILY
  4. PROTONIX [Concomitant]
     Indication: DYSPEPSIA
     Dosage: 40 MG DAILY
  5. NEURONTIN [Concomitant]
     Indication: PAIN
  6. MORPHINE [Concomitant]
     Indication: PAIN
  7. FENTANYL [Concomitant]
     Indication: PAIN
  8. VITAMIN D [Concomitant]
     Indication: PRODUCT USED FOR UNKNOWN INDICATION
  9. MULTIVITAMIN [Concomitant]
     Indication: PRODUCT USED FOR UNKNOWN INDICATION

REACTIONS (2)
  - Injection site pain [Recovered/Resolved]
  - Injection site haemorrhage [Recovered/Resolved]
